FAERS Safety Report 4899804-0 (Version None)
Quarter: 2006Q1

REPORT INFORMATION
  Report Type: 
  Country: None (occurrence: None)
  Receive Date: 20060118
  Receipt Date: 20050907
  Transmission Date: 20060701
  Serious: No
  Sender: FDA-Public Use
  Company Number: 2005001755

PATIENT
  Age: 66 Year
  Sex: Female

DRUGS (1)
  1. TARCEVA [Suspect]
     Dosage: 150 MG (QD), ORAL
     Route: 048

REACTIONS (7)
  - DIARRHOEA [None]
  - DYSPHAGIA [None]
  - FATIGUE [None]
  - MOUTH ULCERATION [None]
  - ORAL CANDIDIASIS [None]
  - RASH [None]
  - STOMATITIS [None]
